FAERS Safety Report 5169122-4 (Version None)
Quarter: 2006Q4

REPORT INFORMATION
  Report Type: 
  Country: None (occurrence: None)
  Receive Date: 20061211
  Receipt Date: 20061024
  Transmission Date: 20070319
  Serious: Yes (Hospitalization)
  Sender: FDA-Public Use
  Company Number: JP-MERCK-0610USA14115

PATIENT
  Age: 31 Year
  Sex: Male

DRUGS (1)
  1. PROPECIA [Suspect]
     Indication: MALE PATTERN BALDNESS
     Route: 048
     Dates: start: 20060101, end: 20061019

REACTIONS (1)
  - LIVER DISORDER [None]
